FAERS Safety Report 13178910 (Version 1)
Quarter: 2017Q1

REPORT INFORMATION
  Report Type: Spontaneous
  Country: US (occurrence: US)
  Receive Date: 20170202
  Receipt Date: 20170202
  Transmission Date: 20170428
  Serious: No
  Sender: FDA-Public Use
  Company Number: US-PFIZER INC-2017040623

PATIENT
  Sex: Female

DRUGS (1)
  1. XELJANZ [Suspect]
     Active Substance: TOFACITINIB CITRATE
     Indication: JUVENILE IDIOPATHIC ARTHRITIS
     Dosage: UNK

REACTIONS (17)
  - Asthenia [Unknown]
  - Joint stiffness [Unknown]
  - Anal incontinence [Unknown]
  - Myalgia [Unknown]
  - Extremity contracture [Unknown]
  - Product use issue [Unknown]
  - Gastrooesophageal reflux disease [Unknown]
  - Hot flush [Unknown]
  - Fatigue [Unknown]
  - Urinary incontinence [Unknown]
  - Dry skin [Unknown]
  - Excoriation [Unknown]
  - Weight increased [Unknown]
  - Tachycardia [Unknown]
  - Arthralgia [Unknown]
  - Back pain [Unknown]
  - Alopecia [Unknown]
